FAERS Safety Report 5194105-8 (Version None)
Quarter: 2006Q4

REPORT INFORMATION
  Report Type: 
  Country: None (occurrence: None)
  Receive Date: 20061226
  Receipt Date: 20061219
  Transmission Date: 20070319
  Serious: Yes (Other)
  Sender: FDA-Public Use
  Company Number: S06-USA-04862-01

PATIENT
  Age: 55 Year
  Sex: Male
  Weight: 122.4712 kg

DRUGS (9)
  1. LEXAPRO [Suspect]
     Indication: ANXIETY
     Dosage: 10 MG QD PO
     Route: 048
     Dates: start: 20061111, end: 20061115
  2. AMBIEN [Concomitant]
  3. TENORMIN [Concomitant]
  4. TENEX [Concomitant]
  5. .. [Concomitant]
  6. ,, [Concomitant]
  7. // [Concomitant]
  8. BENADRYL [Concomitant]
  9. MULTI-VITAMINS [Concomitant]

REACTIONS (14)
  - ABDOMINAL PAIN [None]
  - ANXIETY [None]
  - CONDITION AGGRAVATED [None]
  - DECREASED APPETITE [None]
  - DEPRESSION [None]
  - DIARRHOEA [None]
  - DYSURIA [None]
  - FEELING ABNORMAL [None]
  - HOT FLUSH [None]
  - HYPERHIDROSIS [None]
  - LOSS OF LIBIDO [None]
  - SUICIDAL IDEATION [None]
  - TUNNEL VISION [None]
  - WEIGHT DECREASED [None]
